FAERS Safety Report 9247723 (Version 1)
Quarter: 2013Q2

REPORT INFORMATION
  Report Type: Spontaneous
  Country: JP (occurrence: JP)
  Receive Date: 20130423
  Receipt Date: 20130423
  Transmission Date: 20140414
  Serious: Yes (Other)
  Sender: FDA-Public Use
  Company Number: JP-ELI_LILLY_AND_COMPANY-JP201304004269

PATIENT
  Age: 82 Year
  Sex: Female

DRUGS (2)
  1. FORTEO [Suspect]
     Dosage: UNK
     Route: 058
     Dates: start: 201205, end: 20130413
  2. FORTEO [Suspect]
     Dosage: UNK
     Route: 058
     Dates: start: 20130414

REACTIONS (5)
  - Uterine leiomyoma [Recovered/Resolved]
  - Spinal fracture [Unknown]
  - Pruritus [Recovering/Resolving]
  - Furuncle [Recovering/Resolving]
  - Alopecia [Recovering/Resolving]
